FAERS Safety Report 7955497-7 (Version None)
Quarter: 2011Q4

REPORT INFORMATION
  Report Type: 
  Country: None (occurrence: None)
  Receive Date: 20111202
  Receipt Date: 20111129
  Transmission Date: 20120403
  Serious: Yes (Hospitalization, Other)
  Sender: FDA-Public Use
  Company Number: US-AMGEN-QUU434302

PATIENT
  Age: 48 Year
  Sex: Female
  Weight: 58 kg

DRUGS (44)
  1. MYCOPHENOLATE MOFETIL [Concomitant]
     Dosage: 1000 MG, BID
  2. ASCORBIC ACID [Concomitant]
     Dosage: 500 MG, QD
     Route: 048
  3. SIROLIMUS [Concomitant]
     Dosage: 1 MG, QD
  4. LANSOPRAZOLE [Concomitant]
     Dosage: 30 MG, QD
     Route: 048
  5. GLIPIZIDE [Concomitant]
     Dosage: 5 MG, QD
  6. RIFAMPIN [Concomitant]
     Dosage: 300 MG, BID
     Route: 048
  7. AUGMENTIN '125' [Concomitant]
     Dosage: 875 MG, QD
  8. METOLAZONE [Concomitant]
     Dosage: 2.5 MG, QD
     Route: 048
  9. ATIVAN [Concomitant]
     Dosage: 1 MG, PRN
  10. ONDANSETRON HYDROCHLORIDE [Concomitant]
     Dosage: 4 MG, PRN
  11. ACETAMINOPHEN AND OXYCODONE HCL [Concomitant]
  12. MAGNESIUM OXIDE [Concomitant]
     Dosage: 400 MG, BID
  13. DASATINIB [Concomitant]
     Dosage: 100 MG, QD
     Dates: start: 20090101
  14. VACCINES [Concomitant]
  15. CELEXA [Concomitant]
     Dosage: 20 MG, QD
     Route: 048
  16. TACROLIMUS [Concomitant]
     Dosage: 1 MG, QD
  17. NEURONTIN [Concomitant]
     Dosage: 400 MG, TID
  18. PERCOCET [Concomitant]
     Dosage: 1 DF, PRN
     Route: 048
  19. SYNTHROID [Concomitant]
     Dosage: 50 MUG, QD
     Route: 048
  20. PRILOSEC [Concomitant]
     Dosage: 49 NG, QD
  21. NPLATE [Suspect]
     Indication: THROMBOCYTOPENIA
  22. OXYCODONE HCL [Concomitant]
     Dosage: 10 MG, PRN
  23. ACETAMINOPHEN [Concomitant]
  24. DIPHENHYDRAMINE HCL [Concomitant]
  25. DOXYCYCLINE [Concomitant]
     Dosage: 100 MG, BID
     Route: 048
  26. NPLATE [Suspect]
     Indication: IDIOPATHIC THROMBOCYTOPENIC PURPURA
     Dosage: 360 MUG, UNK
     Route: 058
     Dates: start: 20100216, end: 20101227
  27. URSODIOL [Concomitant]
     Dosage: 300 MG, BID
  28. MULTI-VITAMINS [Concomitant]
  29. TRIMETHOPRIM + SULFAMETHOXAZOLE [Concomitant]
     Dosage: UNK UNK, 3 TIMES/WK
  30. TRIAMCINOLONE [Concomitant]
     Dosage: .5 %, BID
     Route: 061
  31. INSULIN [Concomitant]
     Dosage: UNK UNK, PRN
  32. DIFLUCAN [Concomitant]
     Dosage: 100 MG, QD
     Route: 048
  33. PROMETHAZINE [Concomitant]
     Dosage: 25 MG, QD
  34. B12                                /00056201/ [Concomitant]
     Dosage: 1000 MUG, QMO
  35. ACYCLOVIR [Concomitant]
     Dosage: 400 MG, BID
  36. BACTRIM [Concomitant]
     Dosage: 1 DF, QD
     Route: 048
  37. PREDNISONE TAB [Concomitant]
  38. MORPHINE SULFATE [Concomitant]
     Dosage: 30 MG, BID
     Route: 048
  39. POSACONAZOLE [Concomitant]
     Dosage: 200 MG, TID
  40. POTASSIUM CHLORIDE [Concomitant]
     Dosage: 20 MEQ, QD
  41. AZITHROMYCIN [Concomitant]
     Dosage: 600 MG, QWK
  42. PEPCID [Concomitant]
     Dosage: 40 MG, QD
     Route: 048
  43. ASPIRIN [Concomitant]
     Dosage: 81 MG, QD
     Route: 048
  44. MUPIROCIN [Concomitant]
     Dosage: UNK UNK, BID
     Route: 061

REACTIONS (39)
  - VOMITING [None]
  - GRAFT VERSUS HOST DISEASE [None]
  - OEDEMA PERIPHERAL [None]
  - IMMUNOSUPPRESSION [None]
  - ECCHYMOSIS [None]
  - SKIN HYPERPIGMENTATION [None]
  - ERYTHEMA [None]
  - PAIN IN EXTREMITY [None]
  - INSOMNIA [None]
  - ILIAC ARTERY THROMBOSIS [None]
  - ASTHENIA [None]
  - HYPOTHYROIDISM [None]
  - BLOOD POTASSIUM INCREASED [None]
  - DECREASED APPETITE [None]
  - PAIN [None]
  - PLEURAL EFFUSION [None]
  - ESCHAR [None]
  - FATIGUE [None]
  - PULMONARY EMBOLISM [None]
  - ILIAC ARTERY OCCLUSION [None]
  - ACARODERMATITIS [None]
  - ANXIETY [None]
  - PURPURA [None]
  - HEPATIC ENZYME INCREASED [None]
  - DEEP VEIN THROMBOSIS [None]
  - CARDIAC FAILURE CONGESTIVE [None]
  - PETECHIAE [None]
  - SKIN EXFOLIATION [None]
  - ALOPECIA [None]
  - MUSCULAR WEAKNESS [None]
  - WHEEZING [None]
  - ATELECTASIS [None]
  - DIARRHOEA [None]
  - NAUSEA [None]
  - SKIN ULCER [None]
  - GANGRENE [None]
  - FEELING COLD [None]
  - MYOPATHY [None]
  - HYPOAESTHESIA [None]
